FAERS Safety Report 4595206-5 (Version None)
Quarter: 2005Q1

REPORT INFORMATION
  Report Type: 
  Country: None (occurrence: None)
  Receive Date: 20050224
  Receipt Date: 20050211
  Transmission Date: 20050727
  Serious: Yes (Death)
  Sender: FDA-Public Use
  Company Number: 2005027310

PATIENT
  Age: 32 Year
  Sex: Male

DRUGS (4)
  1. GEODON [Suspect]
     Indication: SCHIZOAFFECTIVE DISORDER
     Dosage: 120 MG (60 MG, 2 IN 1 D), ORAL
     Route: 048
     Dates: start: 20041001
  2. OLANZAPINE [Concomitant]
  3. LITHIUM           (LITHIUM) [Concomitant]
  4. VALPROATE SODIUM [Concomitant]

REACTIONS (1)
  - SUDDEN DEATH [None]
